FAERS Safety Report 6466908-0 (Version None)
Quarter: 2009Q4

REPORT INFORMATION
  Report Type: 
  Country: None (occurrence: None)
  Receive Date: 20091202
  Receipt Date: 20091123
  Transmission Date: 20100525
  Serious: Yes (Hospitalization, Other)
  Sender: FDA-Public Use
  Company Number: US-PFIZER INC-2009302535

PATIENT
  Sex: Male
  Weight: 59.42 kg

DRUGS (1)
  1. SUTENT [Suspect]
     Indication: HEPATIC CANCER METASTATIC
     Dosage: 25 MG, 1X/DAY
     Dates: start: 20090701

REACTIONS (2)
  - DYSPNOEA [None]
  - PULMONARY FIBROSIS [None]
